FAERS Safety Report 7063244-9 (Version None)
Quarter: 2010Q4

REPORT INFORMATION
  Report Type: 
  Country: None (occurrence: None)
  Receive Date: 20101026
  Receipt Date: 20100622
  Transmission Date: 20110411
  Serious: Yes (Other)
  Sender: FDA-Public Use
  Company Number: US-PFIZER INC-2010060624

PATIENT
  Sex: Male
  Weight: 88.44 kg

DRUGS (5)
  1. LIPITOR [Suspect]
     Indication: DYSLIPIDAEMIA
     Dosage: 10 MG, DAILY
     Route: 048
     Dates: start: 20050101, end: 20090101
  2. PLETAL [Concomitant]
     Dosage: 100 MG, DAILY
  3. PLAVIX [Concomitant]
     Dosage: 75 MG, DAILY
  4. LISINOPRIL [Concomitant]
     Dosage: UNK
  5. TRICOR [Concomitant]
     Dosage: 48 DAILY

REACTIONS (1)
  - PAIN IN EXTREMITY [None]
